FAERS Safety Report 11082174 (Version 2)
Quarter: 2015Q2

REPORT INFORMATION
  Report Type: Spontaneous
  Country: US (occurrence: US)
  Receive Date: 20150501
  Receipt Date: 20150501
  Transmission Date: 20150821
  Serious: Yes (Other)
  Sender: FDA-Public Use
  Company Number: US-PFIZER INC-2015143495

PATIENT
  Age: 26 Year
  Sex: Female
  Weight: 67 kg

DRUGS (2)
  1. QSYMIA [Suspect]
     Active Substance: PHENTERMINE HYDROCHLORIDE\TOPIRAMATE
     Indication: WEIGHT DECREASED
     Dosage: (7.5MG/46MG) 1 DF, 1X/DAY
     Route: 048
     Dates: start: 201411, end: 20150129
  2. CHANTIX [Suspect]
     Active Substance: VARENICLINE TARTRATE
     Indication: SMOKING CESSATION THERAPY
     Dosage: UNK
     Route: 048
     Dates: end: 201501

REACTIONS (21)
  - Pruritus [Recovered/Resolved]
  - Decreased appetite [Recovered/Resolved]
  - Aggression [Recovered/Resolved]
  - Burning sensation [Recovered/Resolved]
  - Neck pain [Recovered/Resolved]
  - Rash [Not Recovered/Not Resolved]
  - Food craving [Recovered/Resolved]
  - Back pain [Recovered/Resolved]
  - Skin warm [Recovered/Resolved]
  - Panic reaction [Recovered/Resolved]
  - Ocular hyperaemia [Recovered/Resolved]
  - Dyspnoea [Recovered/Resolved]
  - Depressed mood [Recovered/Resolved]
  - Feeling jittery [Not Recovered/Not Resolved]
  - Paraesthesia [Recovered/Resolved]
  - Disturbance in attention [Recovered/Resolved]
  - Rectal haemorrhage [Recovered/Resolved]
  - Suicidal ideation [Recovered/Resolved]
  - Vaginal haemorrhage [Recovered/Resolved]
  - Logorrhoea [Not Recovered/Not Resolved]
  - Dysgeusia [Recovered/Resolved]
